FAERS Safety Report 13414180 (Version 1)
Quarter: 2017Q2

REPORT INFORMATION
  Report Type: Spontaneous
  Country: DK (occurrence: DK)
  Receive Date: 20170407
  Receipt Date: 20170407
  Transmission Date: 20170830
  Serious: Yes (Hospitalization)
  Sender: FDA-Public Use
  Company Number: DK-PFIZER INC-2017144572

PATIENT
  Age: 72 Year
  Sex: Female

DRUGS (8)
  1. LIDOKAIN [Concomitant]
     Active Substance: LIDOCAINE
     Dosage: UNK, SINGLE
     Dates: start: 20150804, end: 20150804
  2. LIDOKAIN [Concomitant]
     Active Substance: LIDOCAINE
     Indication: LOCAL ANAESTHESIA
     Dosage: UNK, SINGLE
     Dates: start: 20150305, end: 20150305
  3. LIDOKAIN [Concomitant]
     Active Substance: LIDOCAINE
     Dosage: UNK, SINGLE
     Dates: start: 20150709, end: 20150709
  4. DEPO-MEDROL [Suspect]
     Active Substance: METHYLPREDNISOLONE ACETATE
     Dosage: UNK, SINGLE
     Dates: start: 20150804, end: 20150804
  5. LIDOKAIN [Concomitant]
     Active Substance: LIDOCAINE
     Dosage: UNK, SINGLE
     Dates: start: 20150428, end: 20150428
  6. DEPO-MEDROL [Suspect]
     Active Substance: METHYLPREDNISOLONE ACETATE
     Dosage: UNK, SINGLE
     Dates: start: 20150709, end: 20150709
  7. DEPO-MEDROL [Suspect]
     Active Substance: METHYLPREDNISOLONE ACETATE
     Indication: ARTHRITIS
     Dosage: UNK, SINGLE
     Dates: start: 20150305, end: 20150305
  8. DEPO-MEDROL [Suspect]
     Active Substance: METHYLPREDNISOLONE ACETATE
     Dosage: UNK, SINGLE
     Dates: start: 20150428, end: 20150428

REACTIONS (4)
  - Joint swelling [Unknown]
  - Tendon injury [Unknown]
  - Arthralgia [Unknown]
  - Physical disability [Unknown]

NARRATIVE: CASE EVENT DATE: 20150901
